FAERS Safety Report 9426561 (Version 2)
Quarter: 2013Q3

REPORT INFORMATION
  Report Type: Spontaneous
  Country: US (occurrence: US)
  Receive Date: 20130730
  Receipt Date: 20130830
  Transmission Date: 20140515
  Serious: No
  Sender: FDA-Public Use
  Company Number: US-PFIZER INC-2013219876

PATIENT
  Age: 55 Year
  Sex: Female
  Weight: 58.96 kg

DRUGS (5)
  1. PRISTIQ [Suspect]
     Indication: BIPOLAR DISORDER
     Dosage: 100 MG, DAILY
     Route: 048
  2. PRISTIQ [Suspect]
     Indication: DEPRESSION
     Dosage: HALF OF 100 MG, DAILY
     Route: 048
     Dates: start: 2013, end: 2013
  3. PRISTIQ [Suspect]
     Dosage: HALF OF 100 MG, ALTERNATE DAY
     Route: 048
     Dates: start: 2013, end: 2013
  4. PRISTIQ [Suspect]
     Dosage: HALF OF 100 MG EVERY OTHER THREE DAYS
     Route: 048
     Dates: start: 2013, end: 2013
  5. ATENOLOL [Concomitant]
     Indication: CARDIAC DISORDER
     Dosage: 50 MG, DAILY

REACTIONS (12)
  - Dizziness [Recovered/Resolved]
  - Nausea [Recovered/Resolved]
  - Mood swings [Unknown]
  - Crying [Unknown]
  - Anger [Unknown]
  - Irritability [Unknown]
  - Eye disorder [Recovered/Resolved]
  - Impaired driving ability [Recovered/Resolved]
  - Feeling drunk [Recovered/Resolved]
  - Malaise [Recovered/Resolved]
  - Visual impairment [Recovered/Resolved]
  - Wrong technique in drug usage process [Unknown]
